FAERS Safety Report 8424478-1 (Version None)
Quarter: 2012Q2

REPORT INFORMATION
  Report Type: 
  Country: None (occurrence: None)
  Receive Date: 20120610
  Receipt Date: 20120531
  Transmission Date: 20120825
  Serious: Yes (Hospitalization)
  Sender: FDA-Public Use
  Company Number: US-VERTEX PHARMACEUTICALS INC.-AE-2012-007365

PATIENT
  Sex: Male

DRUGS (12)
  1. COPEGUS [Concomitant]
     Indication: HEPATITIS C
     Route: 048
     Dates: start: 20120409, end: 20120507
  2. MULTI-VITAMIN [Concomitant]
  3. INCIVEK [Suspect]
     Indication: HEPATITIS C
     Route: 048
     Dates: start: 20120409, end: 20120507
  4. SIMVASTATIN [Concomitant]
     Indication: HYPERCHOLESTEROLAEMIA
  5. LISINOPRIL [Concomitant]
  6. PRAMIPEXOLE [Concomitant]
  7. OMEPRAZOLE [Concomitant]
  8. ZOCOR [Concomitant]
  9. PEGASYS [Concomitant]
     Indication: HEPATITIS C
     Route: 058
     Dates: start: 20120409, end: 20120507
  10. METOPROLOL [Concomitant]
  11. PLAVIX [Concomitant]
  12. ASPIRIN [Concomitant]

REACTIONS (6)
  - PYREXIA [None]
  - FLUID RETENTION [None]
  - RHABDOMYOLYSIS [None]
  - ASTHENIA [None]
  - CHILLS [None]
  - BEDRIDDEN [None]
